FAERS Safety Report 8806174 (Version 1)
Quarter: 2012Q4

REPORT INFORMATION
  Report Type: 
  Country: US (occurrence: US)
  Receive Date: 20120925
  Receipt Date: 20120925
  Transmission Date: 20130627
  Serious: Yes (Other)
  Sender: FDA-Public Use
  Company Number: PHEH2012US005405

PATIENT
  Sex: Female

DRUGS (1)
  1. EXJADE [Suspect]
     Indication: BLOOD COUNT ABNORMAL
     Dosage: 1000 mg, daily
     Route: 048
     Dates: start: 201201

REACTIONS (18)
  - Bipolar I disorder [Unknown]
  - Rectal haemorrhage [Unknown]
  - Fluid retention [Unknown]
  - Drug intolerance [Unknown]
  - Cough [Unknown]
  - Hyperhidrosis [Unknown]
  - Somnolence [Unknown]
  - Abdominal pain upper [Unknown]
  - Nausea [Unknown]
  - Vomiting [Unknown]
  - Fatigue [Unknown]
  - Pruritus [Unknown]
  - Abdominal distension [Unknown]
  - Weight increased [None]
  - Skin discolouration [None]
  - Haemoglobin decreased [None]
  - Haematocrit decreased [None]
  - White blood cell count increased [None]
